FAERS Safety Report 7478560-6 (Version None)
Quarter: 2011Q2

REPORT INFORMATION
  Report Type: 
  Country: None (occurrence: None)
  Receive Date: 20110513
  Receipt Date: 20110509
  Transmission Date: 20111010
  Serious: Yes (Hospitalization)
  Sender: FDA-Public Use
  Company Number: FR-PFIZER INC-HQWYE241702SEP05

PATIENT
  Age: 91 Year
  Sex: Male
  Weight: 67 kg

DRUGS (5)
  1. ACETAMINOPHEN W/ PROPOXYPHENE HCL [Concomitant]
     Dosage: UNK
     Route: 065
     Dates: start: 20050312, end: 20050313
  2. LANZOR [Concomitant]
     Dosage: UNK
     Route: 065
     Dates: start: 20050312, end: 20050313
  3. ALDACTAZINE [Suspect]
     Dosage: UNK
     Route: 065
     Dates: start: 20050312, end: 20050313
  4. ADVIL LIQUI-GELS [Suspect]
     Dosage: 3 TABLETS DAILY
     Route: 048
     Dates: start: 20050312, end: 20050313
  5. FELDENE [Suspect]
     Dosage: UNK
     Route: 065
     Dates: end: 20050313

REACTIONS (1)
  - RENAL FAILURE ACUTE [None]
